FAERS Safety Report 21404825 (Version 1)
Quarter: 2022Q3

REPORT INFORMATION
  Report Type: Spontaneous
  Country: US (occurrence: None)
  Receive Date: 20220930
  Receipt Date: 20220930
  Transmission Date: 20221026
  Serious: No
  Sender: FDA-Public Use
  Company Number: None

PATIENT
  Age: 48 Year
  Sex: Male
  Weight: 122.47 kg

DRUGS (1)
  1. HYDROCHLOROTHIAZIDE\LISINOPRIL [Suspect]
     Active Substance: HYDROCHLOROTHIAZIDE\LISINOPRIL
     Indication: Hypertension
     Dosage: FREQUENCY : DAILY;?
     Route: 048
     Dates: start: 20220405, end: 20220720

REACTIONS (2)
  - Odynophagia [None]
  - Angioedema [None]

NARRATIVE: CASE EVENT DATE: 20220719
